FAERS Safety Report 5342027-1 (Version None)
Quarter: 2007Q2

REPORT INFORMATION
  Report Type: 
  Country: None (occurrence: None)
  Receive Date: 20070530
  Receipt Date: 20070530
  Transmission Date: 20071010
  Serious: Yes (Death, Hospitalization, Other)
  Sender: FDA-Public Use
  Company Number: None

PATIENT
  Sex: Female
  Weight: 111.1313 kg

DRUGS (1)
  1. AVANDIA [Suspect]
     Indication: DIABETES MELLITUS INSULIN-DEPENDENT
     Dosage: DAILY PO
     Route: 048
     Dates: start: 20000901, end: 20060115

REACTIONS (16)
  - ANKLE FRACTURE [None]
  - ANOREXIA [None]
  - BLOOD GLUCOSE INCREASED [None]
  - CARDIAC ARREST [None]
  - DIALYSIS [None]
  - DYSPNOEA [None]
  - FALL [None]
  - FLUID RETENTION [None]
  - MIDDLE EAR EFFUSION [None]
  - NERVOUS SYSTEM DISORDER [None]
  - ORAL INTAKE REDUCED [None]
  - RESPIRATORY ARREST [None]
  - SINUS DISORDER [None]
  - TRANSIENT ISCHAEMIC ATTACK [None]
  - VASCULAR BYPASS GRAFT [None]
  - VOMITING [None]
